FAERS Safety Report 16265346 (Version 2)
Quarter: 2019Q2

REPORT INFORMATION
  Report Type: Report from Study
  Country: US (occurrence: US)
  Receive Date: 20190502
  Receipt Date: 20190513
  Transmission Date: 20190711
  Serious: Yes (Hospitalization)
  Sender: FDA-Public Use
  Company Number: US-ROCHE-2309688

PATIENT
  Age: 63 Year
  Sex: Male
  Weight: 69 kg

DRUGS (1)
  1. ATEZOLIZUMAB. [Suspect]
     Active Substance: ATEZOLIZUMAB
     Indication: PROSTATE CANCER METASTATIC
     Route: 042
     Dates: start: 20190214, end: 20190328

REACTIONS (9)
  - Back pain [Unknown]
  - Pyrexia [Unknown]
  - Abdominal pain [Unknown]
  - Blood creatinine increased [Unknown]
  - Hyponatraemia [Unknown]
  - Painful respiration [Unknown]
  - Pain [Unknown]
  - Nausea [Unknown]
  - Speech disorder [Unknown]

NARRATIVE: CASE EVENT DATE: 20190417
